FAERS Safety Report 6604570-4 (Version None)
Quarter: 2010Q1

REPORT INFORMATION
  Report Type: 
  Country: None (occurrence: None)
  Receive Date: 20100226
  Receipt Date: 20091129
  Transmission Date: 20100710
  Serious: No
  Sender: FDA-Public Use
  Company Number: A0833006A

PATIENT
  Sex: Female

DRUGS (1)
  1. LAMICTAL CD [Suspect]
     Indication: BIPOLAR DISORDER
     Dosage: 150MG TWICE PER DAY
     Route: 048

REACTIONS (3)
  - ACARODERMATITIS [None]
  - RASH GENERALISED [None]
  - TREATMENT NONCOMPLIANCE [None]
